APPROVED DRUG PRODUCT: OPTIRAY 160
Active Ingredient: IOVERSOL
Strength: 34%
Dosage Form/Route: INJECTABLE;INJECTION
Application: N019710 | Product #003
Applicant: LIEBEL-FLARSHEIM CO LLC
Approved: Dec 30, 1988 | RLD: No | RS: No | Type: DISCN